FAERS Safety Report 5640250-X (Version None)
Quarter: 2008Q1

REPORT INFORMATION
  Report Type: 
  Country: None (occurrence: None)
  Receive Date: 20080225
  Receipt Date: 20080211
  Transmission Date: 20080703
  Serious: Yes (Death, Other)
  Sender: FDA-Public Use
  Company Number: 45160

PATIENT
  Age: 74 Year
  Sex: Male
  Weight: 62 kg

DRUGS (3)
  1. ETOPOSIDE [Suspect]
     Indication: SMALL CELL LUNG CANCER EXTENSIVE STAGE
     Dosage: 100MG/M2 DAY 1 - 3 OF A 21 DA
     Dates: start: 20071128, end: 20071220
  2. REFER TO CIOMS FORM KR20080200375 (6FEB2008) FOR DETAILS [Concomitant]
  3. REFER TO CIOMS FORM KR200802000375 (12FEB2008) FOR DETAILS [Concomitant]

REACTIONS (2)
  - PLEURAL EFFUSION [None]
  - SEPSIS [None]
